FAERS Safety Report 13853430 (Version 2)
Quarter: 2017Q3

REPORT INFORMATION
  Report Type: Report from Study
  Country: CA (occurrence: CA)
  Receive Date: 20170809
  Receipt Date: 20170817
  Transmission Date: 20171127
  Serious: Yes (Other)
  Sender: FDA-Public Use
  Company Number: CA-PFIZER INC-2017344404

PATIENT
  Age: 52 Year
  Sex: Male

DRUGS (7)
  1. METHOTREXATE SODIUM. [Suspect]
     Active Substance: METHOTREXATE SODIUM
     Dosage: UNK
     Route: 065
  2. ENBREL [Suspect]
     Active Substance: ETANERCEPT
     Indication: PSORIASIS
  3. ENBREL [Suspect]
     Active Substance: ETANERCEPT
     Indication: PSORIATIC ARTHROPATHY
  4. ACENAC-P [Concomitant]
     Dosage: UNK
     Route: 065
  5. ENBREL [Suspect]
     Active Substance: ETANERCEPT
     Indication: RHEUMATOID ARTHRITIS
     Dosage: 50 MG, UNK
     Route: 065
     Dates: start: 20170427
  6. ALLEGRA [Concomitant]
     Active Substance: FEXOFENADINE HYDROCHLORIDE
     Dosage: UNK
  7. ENBREL [Suspect]
     Active Substance: ETANERCEPT
     Indication: ANKYLOSING SPONDYLITIS

REACTIONS (13)
  - Burning sensation [Unknown]
  - Pain in extremity [Unknown]
  - Peripheral swelling [Unknown]
  - Psoriasis [Unknown]
  - Infection [Unknown]
  - Pruritus [Unknown]
  - Erythema [Unknown]
  - Injection site swelling [Not Recovered/Not Resolved]
  - Diarrhoea [Unknown]
  - Influenza like illness [Unknown]
  - Skin infection [Unknown]
  - Injection site erythema [Recovering/Resolving]
  - Mobility decreased [Unknown]

NARRATIVE: CASE EVENT DATE: 2017
